FAERS Safety Report 19519878 (Version 1)
Quarter: 2021Q3

REPORT INFORMATION
  Report Type: Spontaneous
  Country: GR (occurrence: GR)
  Receive Date: 20210712
  Receipt Date: 20210712
  Transmission Date: 20211014
  Serious: Yes (Other)
  Sender: FDA-Public Use
  Company Number: GR-BAYER-2021-170475

PATIENT
  Age: 41 Year
  Sex: Female

DRUGS (1)
  1. GADOVIST [Suspect]
     Active Substance: GADOBUTROL
     Indication: MAGNETIC RESONANCE IMAGING
     Dosage: 10 ML, ONCE
     Route: 042

REACTIONS (3)
  - Burning sensation [None]
  - Sensory loss [None]
  - Hypotension [None]

NARRATIVE: CASE EVENT DATE: 20210630
